FAERS Safety Report 9475226 (Version 1)
Quarter: 2013Q3

REPORT INFORMATION
  Report Type: Spontaneous
  Country: AU (occurrence: None)
  Receive Date: 20130820
  Receipt Date: 20130820
  Transmission Date: 20140515
  Serious: Yes (Other)
  Sender: FDA-Public Use
  Company Number: SP06900

PATIENT
  Age: 41 Year
  Sex: Male

DRUGS (7)
  1. XIFAXAN (FILM-COATED TABLET) [Suspect]
     Indication: HEPATIC ENCEPHALOPATHY
     Dosage: 1100 MG (550 MG, 2 IN 1 D), ORAL
     Route: 048
     Dates: start: 201211, end: 20130515
  2. OLANZAPINE [Concomitant]
  3. PANTOPRAZOLE [Concomitant]
  4. SPIRIONOLACTONE [Concomitant]
  5. THIAMINE [Concomitant]
  6. LACTULOSE [Concomitant]
  7. MAGMIN [Concomitant]

REACTIONS (2)
  - Stab wound [None]
  - Staphylococcal infection [None]
